FAERS Safety Report 5199257-1 (Version None)
Quarter: 2007Q1

REPORT INFORMATION
  Report Type: 
  Country: None (occurrence: None)
  Receive Date: 20070104
  Receipt Date: 20061226
  Transmission Date: 20070707
  Serious: Yes (Other)
  Sender: FDA-Public Use
  Company Number: US-PFIZER INC-2007000056

PATIENT
  Sex: Female
  Weight: 56.7 kg

DRUGS (12)
  1. LYRICA [Interacting]
     Indication: MULTIPLE SCLEROSIS
  2. NEURONTIN [Suspect]
     Indication: MULTIPLE SCLEROSIS
  3. BACLOFEN [Interacting]
     Indication: MUSCLE SPASMS
  4. VALIUM [Interacting]
     Indication: MUSCLE SPASMS
  5. HERBAL PREPARATION [Interacting]
     Indication: GASTROINTESTINAL MOTILITY DISORDER
  6. THIAMINE HCL [Concomitant]
  7. VITAMIN B-12 [Concomitant]
  8. VITAMIN A [Concomitant]
  9. ASCORBIC ACID [Concomitant]
  10. VITAMIN D [Concomitant]
  11. VITAMIN E [Concomitant]
  12. VITAMIN B COMPLEX CAP [Concomitant]

REACTIONS (8)
  - ASTHENIA [None]
  - DRUG INEFFECTIVE [None]
  - DRUG INTERACTION [None]
  - INFLUENZA [None]
  - INSOMNIA [None]
  - MUSCULAR WEAKNESS [None]
  - MUSCULOSKELETAL DISORDER [None]
  - SOMNOLENCE [None]
